FAERS Safety Report 7868163-3 (Version None)
Quarter: 2011Q4

REPORT INFORMATION
  Report Type: 
  Country: None (occurrence: None)
  Receive Date: 20111028
  Receipt Date: 20111021
  Transmission Date: 20120403
  Serious: No
  Sender: FDA-Public Use
  Company Number: US-B.I. PHARMACEUTICALS,INC./RIDGEFIELD-2011-BP-24720BP

PATIENT
  Sex: Male

DRUGS (7)
  1. COZAAR [Concomitant]
  2. ALLEGRA [Concomitant]
  3. DIGOXIN [Concomitant]
  4. PRADAXA [Suspect]
     Indication: ATRIAL FIBRILLATION
     Dosage: 150 MG
     Route: 048
  5. COREG [Concomitant]
  6. PRILOSEC [Concomitant]
  7. ACTONEL [Concomitant]

REACTIONS (2)
  - HYPOTENSION [None]
  - SWELLING FACE [None]
